FAERS Safety Report 14869675 (Version 5)
Quarter: 2018Q3

REPORT INFORMATION
  Report Type: Report from Study
  Country: CN (occurrence: CN)
  Receive Date: 20180509
  Receipt Date: 20180911
  Transmission Date: 20181010
  Serious: Yes (Hospitalization)
  Sender: FDA-Public Use
  Company Number: CN-ROCHE-2114826

PATIENT
  Age: 57 Year
  Sex: Male
  Weight: 62 kg

DRUGS (13)
  1. BICYCLOL [Concomitant]
     Active Substance: BICYCLOL
     Route: 065
     Dates: start: 20180213
  2. AMLODIPINE BESYLATE. [Concomitant]
     Active Substance: AMLODIPINE BESYLATE
     Indication: RHEUMATOID ARTHRITIS
     Route: 065
     Dates: start: 20180316
  3. PEMETREXED. [Concomitant]
     Active Substance: PEMETREXED
  4. BICYCLOL [Concomitant]
     Active Substance: BICYCLOL
     Indication: RHEUMATOID ARTHRITIS
     Route: 065
     Dates: start: 20171221, end: 20180119
  5. ALFACALCIDOL [Concomitant]
     Active Substance: ALFACALCIDOL
     Indication: RHEUMATOID ARTHRITIS
     Route: 065
     Dates: start: 20151009
  6. TEPRENONE [Concomitant]
     Active Substance: TEPRENONE
     Indication: RHEUMATOID ARTHRITIS
     Route: 065
     Dates: start: 20151019
  7. GLUCOSAMINE HYDROCHLORIDE [Concomitant]
     Active Substance: GLUCOSAMINE HYDROCHLORIDE
     Route: 065
     Dates: start: 20170810
  8. FOLIC ACID. [Concomitant]
     Active Substance: FOLIC ACID
     Indication: RHEUMATOID ARTHRITIS
     Route: 065
     Dates: start: 20171124
  9. CARBOPLATIN. [Concomitant]
     Active Substance: CARBOPLATIN
  10. TOCILIZUMAB. [Suspect]
     Active Substance: TOCILIZUMAB
     Indication: RHEUMATOID ARTHRITIS
     Dosage: MOST RECENT DOSE OF BLINDED TOCILIZUMAB PRIOR TO AE ONSET ON 13/APR/2018.
     Route: 058
     Dates: start: 20171124
  11. PLACEBO [Suspect]
     Active Substance: UNSPECIFIED INGREDIENT
     Indication: RHEUMATOID ARTHRITIS
     Dosage: ON 12/APR/2018, MOST RECENT DOSE OF BLINDED METHOTREXATE PRIOR TO AE ONSET.?ON 19/APR/2018, DATE OF
     Route: 048
     Dates: start: 20171126
  12. METHYLPREDNISOLONE. [Concomitant]
     Active Substance: METHYLPREDNISOLONE
     Indication: RHEUMATOID ARTHRITIS
     Route: 048
     Dates: start: 20170810
  13. DIACEREIN [Concomitant]
     Active Substance: DIACEREIN
     Indication: RHEUMATOID ARTHRITIS
     Route: 065
     Dates: start: 20170810

REACTIONS (1)
  - Lung neoplasm malignant [Not Recovered/Not Resolved]

NARRATIVE: CASE EVENT DATE: 201804
